FAERS Safety Report 24267839 (Version 2)
Quarter: 2024Q4

REPORT INFORMATION
  Report Type: Spontaneous
  Country: US (occurrence: US)
  Receive Date: 20240830
  Receipt Date: 20241205
  Transmission Date: 20250114
  Serious: Yes (Death)
  Sender: PROCTER AND GAMBLE
  Company Number: US-PROCTER+GAMBLE-PH24006806

PATIENT
  Age: 34 Year
  Sex: Female

DRUGS (3)
  1. DIPHENHYDRAMINE HYDROCHLORIDE [Suspect]
     Active Substance: DIPHENHYDRAMINE HYDROCHLORIDE
     Dosage: UNK
  2. METHADONE [Suspect]
     Active Substance: METHADONE HYDROCHLORIDE
     Dosage: UNK
  3. BROMAZOLAM [Suspect]
     Active Substance: BROMAZOLAM
     Dosage: UNK

REACTIONS (3)
  - Toxicity to various agents [Fatal]
  - Unresponsive to stimuli [Fatal]
  - Postmortem blood drug level abnormal [Fatal]
